FAERS Safety Report 5146328-1 (Version None)
Quarter: 2006Q4

REPORT INFORMATION
  Report Type: 
  Country: None (occurrence: None)
  Receive Date: 20061102
  Receipt Date: 20061020
  Transmission Date: 20070319
  Serious: Yes (Other)
  Sender: FDA-Public Use
  Company Number: 2006129573

PATIENT
  Age: 53 Year
  Sex: Male
  Weight: 79.3795 kg

DRUGS (8)
  1. CHANTIX [Suspect]
     Indication: SMOKING CESSATION THERAPY
     Dosage: 0.5 MG (0.5 MG, 1 IN 1 D), ORAL
     Route: 048
     Dates: start: 20061012, end: 20061019
  2. BIOTIN [Concomitant]
  3. CYMBALTA [Concomitant]
  4. ACETYLSALICYLIC ACID SRT [Concomitant]
  5. GAS-X (SIMETICONE) [Concomitant]
  6. PRILOSEC [Concomitant]
  7. VYTORIN [Concomitant]
  8. SEROQUEL [Concomitant]

REACTIONS (15)
  - BLOOD CHOLESTEROL ABNORMAL [None]
  - CONFUSIONAL STATE [None]
  - DEPRESSED LEVEL OF CONSCIOUSNESS [None]
  - DEVICE FAILURE [None]
  - DISORIENTATION [None]
  - DIZZINESS [None]
  - FALL [None]
  - GALLBLADDER PAIN [None]
  - HYPERTENSION [None]
  - NAUSEA [None]
  - RENAL PAIN [None]
  - TREATMENT NONCOMPLIANCE [None]
  - VERTIGO [None]
  - VISION BLURRED [None]
  - VISUAL ACUITY REDUCED [None]
